FAERS Safety Report 4614324-6 (Version None)
Quarter: 2005Q1

REPORT INFORMATION
  Report Type: 
  Country: None (occurrence: None)
  Receive Date: 20050315
  Receipt Date: 20050302
  Transmission Date: 20050727
  Serious: Yes (Other)
  Sender: FDA-Public Use
  Company Number: 2005020459

PATIENT
  Age: 70 Year
  Sex: Female
  Weight: 59.8748 kg

DRUGS (12)
  1. CELEBREX [Suspect]
     Indication: OSTEOARTHRITIS
     Dosage: 400 MG (200 MG, 2 IN 1 D)
     Dates: start: 19990101
  2. CONJUGATED ESTROGENS [Concomitant]
  3. GABAPENTIN [Concomitant]
  4. RIVASTIGMINE TARTRATE [Concomitant]
  5. CYCLOSPORINE [Concomitant]
  6. FEXOFENADINE HYDROCHLORIDE [Concomitant]
  7. VICODIN [Concomitant]
  8. GLIPIZIDE/METFORMIN HYDROCHLORIDE (GLIPIZIDE, METFORMIN HYDROCHLORIDE) [Concomitant]
  9. SERTALINE HYDROCHLORIDE (SERTRALINE HYDROCHLORIDE) [Concomitant]
  10. DILTIAZEM [Concomitant]
  11. QUINAPRIL HCL [Concomitant]
  12. DOXAZOSIN MESYLATE [Concomitant]

REACTIONS (5)
  - ARTHRALGIA [None]
  - CONDITION AGGRAVATED [None]
  - HAEMANGIOMA [None]
  - LABORATORY TEST ABNORMAL [None]
  - NERVE COMPRESSION [None]
